FAERS Safety Report 6101408-9 (Version None)
Quarter: 2009Q1

REPORT INFORMATION
  Report Type: 
  Country: None (occurrence: None)
  Receive Date: 20090304
  Receipt Date: 20010404
  Transmission Date: 20090719
  Serious: No
  Sender: FDA-Public Use
  Company Number: US-ABBOTT-08P-163-0457250-00

PATIENT

DRUGS (2)
  1. DEPAKENE [Suspect]
     Indication: CONVULSION
     Route: 050
  2. DEPAKENE [Suspect]
     Route: 050

REACTIONS (1)
  - DRUG LEVEL DECREASED [None]
